FAERS Safety Report 10384748 (Version 3)
Quarter: 2014Q3

REPORT INFORMATION
  Report Type: Report from Study
  Country: JP (occurrence: JP)
  Receive Date: 20140814
  Receipt Date: 20140827
  Transmission Date: 20150326
  Serious: No
  Sender: FDA-Public Use
  Company Number: JP-SA-2014SA107025

PATIENT
  Age: 65 Year
  Sex: Female
  Weight: 43.2 kg

DRUGS (3)
  1. THYROGEN [Suspect]
     Active Substance: THYROTROPIN ALFA
     Indication: THERAPEUTIC PROCEDURE
     Route: 030
     Dates: start: 20140804, end: 20140805
  2. THYRADIN-S [Concomitant]
     Active Substance: LEVOTHYROXINE
     Route: 048
  3. TEPRENONE [Concomitant]
     Active Substance: TEPRENONE
     Indication: GASTRITIS
     Route: 048
     Dates: start: 20140805, end: 20140806

REACTIONS (4)
  - Nausea [Recovered/Resolved]
  - Eating disorder [Recovered/Resolved]
  - Pyrexia [Recovered/Resolved]
  - Vomiting [Not Recovered/Not Resolved]

NARRATIVE: CASE EVENT DATE: 20140804
